FAERS Safety Report 23453586 (Version 1)
Quarter: 2024Q1

REPORT INFORMATION
  Report Type: Spontaneous
  Country: US (occurrence: US)
  Receive Date: 20240129
  Receipt Date: 20240129
  Transmission Date: 20240409
  Serious: Yes (Hospitalization)
  Sender: FDA-Public Use
  Company Number: US-Eisai-EC-2024-158048

PATIENT
  Age: 68 Year
  Sex: Male
  Weight: 69.5 kg

DRUGS (5)
  1. LEQEMBI [Suspect]
     Active Substance: LECANEMAB-IRMB
     Indication: Dementia Alzheimer^s type
     Dosage: DOSE UNKNOWN
     Route: 042
     Dates: start: 20230327
  2. BIKTARVY [Concomitant]
     Active Substance: BICTEGRAVIR SODIUM\EMTRICITABINE\TENOFOVIR ALAFENAMIDE FUMARATE
     Indication: HIV test positive
     Dosage: DOSE AND FREQUENCY UNKNOWN
  3. ADLARITY [Concomitant]
     Active Substance: DONEPEZIL HYDROCHLORIDE
     Indication: Dementia Alzheimer^s type
     Dosage: DOSE AND FREQUENCY UNKNOWN
  4. SILDENAFIL [Concomitant]
     Active Substance: SILDENAFIL
     Indication: Dementia Alzheimer^s type
     Dosage: DOSE AND FREQUENCY UNKNOWN
  5. MEGESTROL [Concomitant]
     Active Substance: MEGESTROL
     Indication: Appetite disorder
     Dosage: DOSE AND FREQUENCY UNKNOWN

REACTIONS (2)
  - Dementia [Unknown]
  - Agitation [Unknown]

NARRATIVE: CASE EVENT DATE: 20240102
